FAERS Safety Report 7012196-6 (Version None)
Quarter: 2010Q3

REPORT INFORMATION
  Report Type: 
  Country: None (occurrence: None)
  Receive Date: 20100924
  Receipt Date: 20100915
  Transmission Date: 20110219
  Serious: Yes (Hospitalization)
  Sender: FDA-Public Use
  Company Number: CN-ASTRAZENECA-2010SE43295

PATIENT
  Age: 50 Year
  Sex: Male

DRUGS (2)
  1. IRESSA [Suspect]
     Indication: NON-SMALL CELL LUNG CANCER
     Route: 048
     Dates: start: 20100501, end: 20100801
  2. HERBAL NERVE TONIC LIQUID [Concomitant]
     Indication: LUNG NEOPLASM MALIGNANT

REACTIONS (1)
  - PARONYCHIA [None]
